FAERS Safety Report 10050213 (Version 1)
Quarter: 2014Q2

REPORT INFORMATION
  Report Type: Spontaneous
  Country: US (occurrence: US)
  Receive Date: 20140401
  Receipt Date: 20140401
  Transmission Date: 20141212
  Serious: Yes (Disabling, Other)
  Sender: FDA-Public Use
  Company Number: US-PFIZER INC-2014087962

PATIENT
  Age: 56 Year
  Sex: Male

DRUGS (7)
  1. LYRICA [Suspect]
     Dosage: 300 MG, TWICE PER DAY
     Route: 048
  2. LANTUS [Concomitant]
     Dosage: UNK
  3. NOVOLOG [Concomitant]
     Dosage: UNK
  4. LISINOPRIL [Concomitant]
     Dosage: UNK
  5. ZOLPIDEM [Concomitant]
     Dosage: UNK
  6. CRESTOR [Concomitant]
     Dosage: UNK
  7. DULERA [Concomitant]
     Dosage: UNK

REACTIONS (3)
  - Amnesia [Unknown]
  - Neuropathy peripheral [Unknown]
  - Type 2 diabetes mellitus [Unknown]
